FAERS Safety Report 23518108 (Version 1)
Quarter: 2024Q1

REPORT INFORMATION
  Report Type: Spontaneous
  Country: US (occurrence: None)
  Receive Date: 20240213
  Receipt Date: 20240213
  Transmission Date: 20240409
  Serious: Yes (Death)
  Sender: FDA-Public Use
  Company Number: None

PATIENT
  Age: 68 Year
  Sex: Female

DRUGS (1)
  1. LENALIDOMIDE [Suspect]
     Active Substance: LENALIDOMIDE
     Indication: Plasma cell myeloma
     Dosage: 25MG QD ORAL?
     Route: 048
     Dates: start: 20231127, end: 20240110

REACTIONS (2)
  - Pancreatic neoplasm [None]
  - Condition aggravated [None]

NARRATIVE: CASE EVENT DATE: 20240213
